FAERS Safety Report 13053137 (Version 1)
Quarter: 2016Q4

REPORT INFORMATION
  Report Type: Spontaneous
  Country: US (occurrence: US)
  Receive Date: 20161220
  Receipt Date: 20161220
  Transmission Date: 20170207
  Serious: No
  Sender: FDA-Public Use
  Company Number: US-BIOVITRUM-2015US0622

PATIENT
  Age: 55 Year
  Sex: Female

DRUGS (10)
  1. ALLERGAN [Concomitant]
     Active Substance: PAPAIN
     Route: 047
  2. KINERET [Suspect]
     Active Substance: ANAKINRA
     Indication: SJOGREN^S SYNDROME
     Route: 047
  3. ACETAMINOPHEN. [Concomitant]
     Active Substance: ACETAMINOPHEN
     Route: 048
  4. VITAMIN E CAPSULE [Concomitant]
  5. AKORN [Concomitant]
  6. VITAMIN A CAPSULE [Concomitant]
  7. ALCON [Concomitant]
     Route: 047
  8. EVOXAC [Concomitant]
     Active Substance: CEVIMELINE HYDROCHLORIDE
     Route: 048
  9. LOPRESSOR [Concomitant]
     Active Substance: METOPROLOL TARTRATE
     Route: 048
  10. FISH OIL [Concomitant]
     Active Substance: FISH OIL
     Dosage: 3 TBS

REACTIONS (1)
  - Punctate keratitis [Unknown]
